FAERS Safety Report 5938562-5 (Version None)
Quarter: 2008Q4

REPORT INFORMATION
  Report Type: 
  Country: None (occurrence: None)
  Receive Date: 20081103
  Receipt Date: 20081027
  Transmission Date: 20090506
  Serious: Yes (Hospitalization)
  Sender: FDA-Public Use
  Company Number: PHHY2008JP21510

PATIENT
  Age: 57 Year

DRUGS (3)
  1. TEGRETOL [Suspect]
     Indication: POST HERPETIC NEURALGIA
     Dosage: 200 MG, BID
     Route: 048
     Dates: start: 20080829, end: 20080830
  2. TEGRETOL [Suspect]
     Dosage: 100 MG, BID
     Route: 048
     Dates: start: 20080901, end: 20080902
  3. TEGRETOL [Suspect]
     Dosage: 200 MG, UNK
     Route: 048
     Dates: start: 20080907, end: 20080907

REACTIONS (5)
  - DIZZINESS [None]
  - PLATELET COUNT DECREASED [None]
  - PRURITUS [None]
  - PYREXIA [None]
  - RASH GENERALISED [None]
